FAERS Safety Report 8740842 (Version 4)
Quarter: 2012Q4

REPORT INFORMATION
  Report Type: 
  Country: FI (occurrence: FI)
  Receive Date: 20120823
  Receipt Date: 20120923
  Transmission Date: 20130627
  Serious: Yes (Hospitalization)
  Sender: FDA-Public Use
  Company Number: FI-ABBOTT-12P-055-0969443-00

PATIENT
  Age: 60 Year
  Sex: Male
  Weight: 94 kg

DRUGS (12)
  1. HUMIRA 40 MG/ 0.8 ML PRE-FILLED SYRINGE [Suspect]
     Indication: ANKYLOSING SPONDYLITIS
     Route: 058
     Dates: start: 20110204, end: 20120413
  2. HUMIRA 40 MG/ 0.8 ML PRE-FILLED SYRINGE [Suspect]
     Indication: ARTHRITIS
  3. HUMIRA 40 MG/ 0.8 ML PRE-FILLED SYRINGE [Suspect]
     Indication: IRITIS
  4. METHOTREXATE [Concomitant]
     Indication: ANKYLOSING SPONDYLITIS
     Route: 048
     Dates: start: 20061120, end: 20120418
  5. METHOTREXATE [Concomitant]
     Indication: ARTHRITIS
  6. SALAZOPYRIN EN [Concomitant]
     Indication: ANKYLOSING SPONDYLITIS
     Dosage: gastro-resistant tablet
     Route: 048
     Dates: start: 1990
  7. SALAZOPYRIN EN [Concomitant]
     Indication: ARTHRITIS
  8. OXIKLORIN [Concomitant]
     Indication: ANKYLOSING SPONDYLITIS
     Dosage: coated tablet.
     Route: 048
     Dates: start: 20081013, end: 20120806
  9. OXIKLORIN [Concomitant]
     Indication: ARTHRITIS
  10. CRESTOR [Concomitant]
     Indication: HYPERLIPIDAEMIA
     Dosage: film-coated tablet
     Route: 048
     Dates: start: 200604, end: 201204
  11. IBUMAX [Concomitant]
     Indication: ANALGESIC THERAPY
     Dosage: when needed 1x1-3: film-coated tablet
     Route: 048
     Dates: start: 2006
  12. FOLIC ACID [Concomitant]
     Indication: VITAMIN SUPPLEMENTATION
     Route: 048
     Dates: start: 2006, end: 201204

REACTIONS (7)
  - Pyrexia [Not Recovered/Not Resolved]
  - Dyspnoea [Not Recovered/Not Resolved]
  - Chronic obstructive pulmonary disease [Unknown]
  - Pulmonary sarcoidosis [Unknown]
  - Angiotensin converting enzyme increased [Unknown]
  - Lysozyme increased [Unknown]
  - Sarcoidosis [Unknown]
